FAERS Safety Report 7905426-7 (Version None)
Quarter: 2011Q4

REPORT INFORMATION
  Report Type: 
  Country: None (occurrence: None)
  Receive Date: 20111109
  Receipt Date: 20111027
  Transmission Date: 20120403
  Serious: Yes (Hospitalization)
  Sender: FDA-Public Use
  Company Number: CL-MYLANLABS-2011S1022647

PATIENT
  Age: 71 Year
  Sex: Male

DRUGS (2)
  1. HALOPERIDOL [Suspect]
     Indication: PSYCHOMOTOR HYPERACTIVITY
     Route: 040
  2. OLANZAPINE [Suspect]
     Indication: PSYCHOMOTOR HYPERACTIVITY
     Dosage: 3 X 10MG
     Route: 030

REACTIONS (4)
  - SPASMODIC DYSPHONIA [None]
  - BRADYCARDIA [None]
  - UPPER AIRWAY OBSTRUCTION [None]
  - TACHYCARDIA [None]
